FAERS Safety Report 22220372 (Version 2)
Quarter: 2023Q2

REPORT INFORMATION
  Report Type: Spontaneous
  Country: US (occurrence: US)
  Receive Date: 20230417
  Receipt Date: 20230426
  Transmission Date: 20230722
  Serious: No
  Sender: FDA-Public Use
  Company Number: US-INCYTE CORPORATION-2023IN003869

PATIENT

DRUGS (2)
  1. JAKAFI [Suspect]
     Active Substance: RUXOLITINIB
     Indication: Polycythaemia vera
     Dosage: 20 MILLIGRAM, BID
     Route: 048
     Dates: start: 20220305
  2. HYDROXYUREA [Suspect]
     Active Substance: HYDROXYUREA
     Indication: Polycythaemia vera
     Route: 065

REACTIONS (7)
  - Full blood count abnormal [Unknown]
  - Visual impairment [Unknown]
  - Platelet count abnormal [Unknown]
  - Blood potassium increased [Unknown]
  - Intraocular pressure test abnormal [Unknown]
  - Anxiety [Unknown]
  - Anaemia [Unknown]
